FAERS Safety Report 5546586-5 (Version None)
Quarter: 2007Q4

REPORT INFORMATION
  Report Type: 
  Country: None (occurrence: None)
  Receive Date: 20071211
  Receipt Date: 20071130
  Transmission Date: 20080405
  Serious: Yes (Other)
  Sender: FDA-Public Use
  Company Number: GB-MERCK-0712GBR00010

PATIENT
  Age: 57 Year
  Sex: Male
  Weight: 94 kg

DRUGS (3)
  1. ZOCOR [Suspect]
     Indication: HYPERLIPIDAEMIA
     Route: 048
     Dates: start: 20070413, end: 20070101
  2. BENDROFLUMETHIAZIDE [Suspect]
     Indication: HYPERTENSION
     Route: 048
     Dates: start: 20070413, end: 20071001
  3. AMLODIPINE BESYLATE [Concomitant]
     Route: 048
     Dates: start: 20070808, end: 20070829

REACTIONS (2)
  - DYSPEPSIA [None]
  - GASTRIC ULCER [None]
